FAERS Safety Report 14370251 (Version 2)
Quarter: 2018Q1

REPORT INFORMATION
  Report Type: Spontaneous
  Country: FR (occurrence: FR)
  Receive Date: 20180110
  Receipt Date: 20180131
  Transmission Date: 20180509
  Serious: Yes (Other)
  Sender: FDA-Public Use
  Company Number: FR-MERCK KGAA-2039790

PATIENT
  Age: 67 Year
  Sex: Female
  Weight: 98 kg

DRUGS (6)
  1. HYDROCHLOROTHIAZIDE. [Concomitant]
     Active Substance: HYDROCHLOROTHIAZIDE
  2. NOVOTHYROX [Suspect]
     Active Substance: LEVOTHYROXINE SODIUM
     Indication: HYPOTHYROIDISM
     Route: 048
     Dates: start: 20170523, end: 20171109
  3. TELMISARTAN. [Concomitant]
     Active Substance: TELMISARTAN
  4. DOLIPRANE [Concomitant]
     Active Substance: ACETAMINOPHEN
  5. TAHOR [Concomitant]
     Active Substance: ATORVASTATIN CALCIUM
  6. MICARDISPLUS(PRITORPLUS) [Concomitant]

REACTIONS (9)
  - Vertigo [Recovered/Resolved]
  - Blood thyroid stimulating hormone increased [Not Recovered/Not Resolved]
  - Myalgia [Recovering/Resolving]
  - Fatigue [Not Recovered/Not Resolved]
  - Depressed mood [Not Recovered/Not Resolved]
  - Weight increased [Not Recovered/Not Resolved]
  - Amnesia [Recovering/Resolving]
  - Arthralgia [Recovering/Resolving]
  - Insomnia [Recovered/Resolved]

NARRATIVE: CASE EVENT DATE: 2017
